FAERS Safety Report 8946766 (Version 1)
Quarter: 2012Q4

REPORT INFORMATION
  Report Type: 
  Country: US (occurrence: US)
  Receive Date: 20121204
  Receipt Date: 20121204
  Transmission Date: 20130627
  Serious: No
  Sender: FDA-Public Use
  Company Number: US-AMGEN-USASP2012071776

PATIENT
  Age: 28 Year
  Sex: Female

DRUGS (2)
  1. ENBREL [Suspect]
     Indication: PSORIASIS
     Dosage: 50 mg, qwk
     Dates: start: 20120228
  2. METHOTREXATE [Concomitant]
     Dosage: 2.5 mg, 8 tablet weekly
     Dates: start: 2010

REACTIONS (2)
  - Skin infection [Recovered/Resolved]
  - Psoriasis [Recovered/Resolved]
